FAERS Safety Report 4552045-9 (Version None)
Quarter: 2005Q1

REPORT INFORMATION
  Report Type: 
  Country: None (occurrence: None)
  Receive Date: 20050112
  Receipt Date: 20041229
  Transmission Date: 20050727
  Serious: Yes (Death)
  Sender: FDA-Public Use
  Company Number: USA-2004-0017373

PATIENT
  Age: 59 Year
  Sex: Male
  Weight: 116.6 kg

DRUGS (2)
  1. OXYCONTIN [Suspect]
     Indication: PAIN
     Dosage: 40 MG, Q12H,
  2. CARISOPRODOL [Suspect]

REACTIONS (6)
  - ARTERIOSCLEROSIS [None]
  - CORONARY ARTERY ATHEROSCLEROSIS [None]
  - DILATATION VENTRICULAR [None]
  - HYPERTENSIVE HEART DISEASE [None]
  - MYOCARDIAL ISCHAEMIA [None]
  - VENTRICULAR HYPERTROPHY [None]
